FAERS Safety Report 21558714 (Version 1)
Quarter: 2022Q4

REPORT INFORMATION
  Report Type: Report from Study
  Country: JP (occurrence: JP)
  Receive Date: 20221107
  Receipt Date: 20221107
  Transmission Date: 20230112
  Serious: Yes (Hospitalization, Other)
  Sender: FDA-Public Use
  Company Number: JP-CELGENE-JPN-20210702093

PATIENT
  Age: 89 Year
  Sex: Male
  Weight: 39.9 kg

DRUGS (32)
  1. POMALIDOMIDE [Suspect]
     Active Substance: POMALIDOMIDE
     Indication: Plasma cell myeloma
     Route: 048
     Dates: start: 20210319, end: 20210428
  2. POMALIDOMIDE [Suspect]
     Active Substance: POMALIDOMIDE
     Route: 048
     Dates: start: 20210515
  3. DEXAMETHASONE [Suspect]
     Active Substance: DEXAMETHASONE
     Indication: Plasma cell myeloma
     Route: 048
     Dates: start: 20210319, end: 20210416
  4. DEXAMETHASONE [Suspect]
     Active Substance: DEXAMETHASONE
     Route: 048
     Dates: start: 20210423
  5. CORTRIL [Concomitant]
     Active Substance: HYDROCORTISONE
     Indication: Adrenal insufficiency
     Dosage: 5 MILLIGRAM
     Route: 048
     Dates: start: 20200612
  6. AMLODIPINE [Concomitant]
     Active Substance: AMLODIPINE BESYLATE
     Indication: Hypertension
     Dosage: 5 MILLIGRAM
     Route: 048
  7. PRASUGREL HYDROCHLORIDE [Concomitant]
     Active Substance: PRASUGREL HYDROCHLORIDE
     Indication: Angina pectoris
     Dosage: 3.75 MILLIGRAM
     Route: 048
     Dates: start: 2015
  8. ASPIRIN [Concomitant]
     Active Substance: ASPIRIN
     Indication: Angina pectoris
     Dosage: 100 MILLIGRAM
     Route: 048
     Dates: start: 2015
  9. BETAHISTINE MESILATE [Concomitant]
     Active Substance: BETAHISTINE MESILATE
     Indication: Vertigo positional
     Dosage: 108 MILLIGRAM
     Route: 048
     Dates: start: 20210225
  10. LOXOPROFEN SODIUM [Concomitant]
     Active Substance: LOXOPROFEN SODIUM
     Indication: Fracture
     Dosage: FREQUENCY TEXT: AS REQUIRED?108 MILLIGRAM
     Route: 062
     Dates: start: 20200206
  11. DENOSUMAB [Concomitant]
     Active Substance: DENOSUMAB
     Indication: Prophylaxis
     Dosage: 120 MILLIGRAM
     Route: 058
     Dates: start: 20210319
  12. Propet [Concomitant]
     Indication: Lip dry
     Route: 062
     Dates: start: 20210429
  13. ACOTIAMIDE HYDROCHLORIDE [Concomitant]
     Active Substance: ACOTIAMIDE HYDROCHLORIDE
     Indication: Hernia
     Dosage: 900 MILLIGRAM
     Route: 048
     Dates: start: 20210511
  14. MAGNESIUM OXIDE [Concomitant]
     Active Substance: MAGNESIUM OXIDE
     Indication: Constipation
     Dosage: 2970 MILLIGRAM
     Route: 048
     Dates: start: 20210513
  15. MAGNESIUM OXIDE [Concomitant]
     Active Substance: MAGNESIUM OXIDE
     Dosage: 1800 MILLIGRAM
     Route: 048
     Dates: start: 20210604
  16. SODIUM PICOSULFATE [Concomitant]
     Active Substance: SODIUM PICOSULFATE
     Indication: Constipation
     Dosage: FREQUENCY TEXT: AS REQUIRED
     Route: 048
     Dates: start: 20210513
  17. METOCLOPRAMIDE [Concomitant]
     Active Substance: METOCLOPRAMIDE
     Indication: Nausea
     Dosage: FREQUENCY TEXT: AS REQUIRED
     Route: 048
     Dates: start: 20210519
  18. SIMVASTATIN [Concomitant]
     Active Substance: SIMVASTATIN
     Indication: Hyperlipidaemia
     Dosage: 5 MILLIGRAM
     Route: 048
     Dates: start: 20200203
  19. LANSOPRAZOLE [Concomitant]
     Active Substance: LANSOPRAZOLE
     Indication: Gastritis prophylaxis
     Dosage: 15 MILLIGRAM
     Route: 048
     Dates: start: 20200204
  20. MIYA-BM [Concomitant]
     Active Substance: CLOSTRIDIUM BUTYRICUM SPORES STRAIN M-55
     Indication: Gastrointestinal disorder
     Dosage: 3 MILLIGRAM
     Route: 048
     Dates: start: 20200425
  21. NICORANDIL [Concomitant]
     Active Substance: NICORANDIL
     Indication: Angina pectoris
     Dosage: 5 MILLIGRAM
     Route: 048
     Dates: start: 20200203
  22. CALCIUM CARBONATE\CHOLECALCIFEROL\MAGNESIUM CARBONATE [Concomitant]
     Active Substance: CALCIUM CARBONATE\CHOLECALCIFEROL\MAGNESIUM CARBONATE
     Indication: Prophylaxis
     Dosage: 5 MILLIGRAM
     Route: 048
     Dates: start: 20210319
  23. WHITE PETROLATUM [Concomitant]
     Active Substance: PETROLATUM
     Indication: Senile pruritus
     Dosage: FREQUENCY TEXT: NOT PROVIDED?APPROPRIATE AMOUNT (GRAM)
     Route: 062
     Dates: start: 20210301
  24. FUROSEMIDE [Concomitant]
     Active Substance: FUROSEMIDE
     Indication: Oedema
     Dosage: 400 MILLIGRAM
     Route: 048
     Dates: start: 20210423
  25. FUROSEMIDE [Concomitant]
     Active Substance: FUROSEMIDE
     Dosage: APPROPRIATE AMOUNT
     Route: 048
     Dates: start: 20210423
  26. FUROSEMIDE [Concomitant]
     Active Substance: FUROSEMIDE
     Dosage: 20 MILLIGRAM
     Route: 048
     Dates: start: 20210512
  27. GLYCOSAMINOGLYCANS [Concomitant]
     Active Substance: GLYCOSAMINOGLYCANS
     Indication: Senile pruritus
     Dosage: FREQUENCY TEXT: NOT PROVIDED?APPROPRIATE AMOUNT (GRAM)
     Route: 062
     Dates: start: 20210210
  28. Azunol [Concomitant]
     Indication: Dry mouth
     Dosage: FREQUENCY TEXT: NOT PROVIDED?4-6 MILLIGRAM
     Route: 049
     Dates: start: 20210429
  29. AVELOX [Concomitant]
     Active Substance: MOXIFLOXACIN HYDROCHLORIDE
     Indication: Respiratory disorder
     Dosage: 400 MILLIGRAM
     Route: 048
     Dates: start: 20210423
  30. Rinderon [Concomitant]
     Indication: Epistaxis
     Dosage: APPROPRIATE AMOUNT (GM)
     Route: 048
     Dates: start: 20210415
  31. SYMPROIC [Concomitant]
     Active Substance: NALDEMEDINE
     Indication: Constipation
     Dosage: .2 MILLIGRAM
     Route: 048
     Dates: start: 20210402
  32. AMITIZA [Concomitant]
     Active Substance: LUBIPROSTONE
     Indication: Constipation
     Route: 048
     Dates: start: 20210610

REACTIONS (1)
  - Pneumonia aspiration [Recovered/Resolved]

NARRATIVE: CASE EVENT DATE: 20210702
